FAERS Safety Report 12971264 (Version 1)
Quarter: 2016Q4

REPORT INFORMATION
  Report Type: Spontaneous
  Country: FR (occurrence: FR)
  Receive Date: 20161123
  Receipt Date: 20161123
  Transmission Date: 20170207
  Serious: Yes (Other)
  Sender: FDA-Public Use
  Company Number: FR-ASTRAZENECA-2016SF23259

PATIENT
  Age: 81 Year
  Sex: Male

DRUGS (8)
  1. FENOFIBRATE. [Suspect]
     Active Substance: FENOFIBRATE
     Route: 048
     Dates: start: 20160702
  2. OROZAMUDOL [Suspect]
     Active Substance: TRAMADOL
     Route: 065
     Dates: start: 20160928, end: 20161017
  3. GAVISCON [Concomitant]
     Active Substance: ALUMINUM HYDROXIDE\MAGNESIUM CARBONATE
  4. HYTACAND [Suspect]
     Active Substance: CANDESARTAN CILEXETIL\HYDROCHLOROTHIAZIDE
     Dosage: (8/12.5 MG)
     Route: 048
     Dates: start: 20160703
  5. XATRAL SR [Suspect]
     Active Substance: ALFUZOSIN
     Route: 065
     Dates: start: 20160727
  6. LOVENOX [Suspect]
     Active Substance: ENOXAPARIN SODIUM
     Route: 065
     Dates: start: 20160706
  7. DUPHALAC [Concomitant]
     Active Substance: LACTULOSE
  8. ZAMUDOL [Suspect]
     Active Substance: TRAMADOL HYDROCHLORIDE
     Route: 048
     Dates: start: 20160626

REACTIONS (2)
  - Hepatitis [Recovering/Resolving]
  - Eosinophilia [Not Recovered/Not Resolved]

NARRATIVE: CASE EVENT DATE: 20160927
